FAERS Safety Report 9723321 (Version 1)
Quarter: 2013Q4

REPORT INFORMATION
  Report Type: Spontaneous
  Country: US (occurrence: US)
  Receive Date: 20131202
  Receipt Date: 20131202
  Transmission Date: 20140711
  Serious: No
  Sender: FDA-Public Use
  Company Number: US-GLAXOSMITHKLINE-A1001307A

PATIENT
  Age: 72 Year
  Sex: Female

DRUGS (2)
  1. FLONASE [Suspect]
     Indication: ASTHMA
     Dosage: 2SPR TWICE PER DAY
     Route: 045
     Dates: end: 2010
  2. ADVAIR [Concomitant]

REACTIONS (1)
  - Nasal dryness [Recovered/Resolved]
